FAERS Safety Report 4686762-7 (Version None)
Quarter: 2005Q2

REPORT INFORMATION
  Report Type: 
  Country: None (occurrence: None)
  Receive Date: 20050606
  Receipt Date: 20050523
  Transmission Date: 20051028
  Serious: Yes (Hospitalization)
  Sender: FDA-Public Use
  Company Number: US_0505117871

PATIENT
  Age: 1 Day

DRUGS (3)
  1. FLUOXETINE HCL [Suspect]
  2. BUSPIRONE HCL [Concomitant]
  3. CARBAMAZEPINE [Concomitant]

REACTIONS (3)
  - COMA [None]
  - DRUG EXPOSURE DURING PREGNANCY [None]
  - NEONATAL DISORDER [None]
